FAERS Safety Report 20376719 (Version 1)
Quarter: 2022Q1

REPORT INFORMATION
  Report Type: Spontaneous
  Country: US (occurrence: None)
  Receive Date: 20220125
  Receipt Date: 20220125
  Transmission Date: 20220424
  Serious: Yes (Life-Threatening)
  Sender: FDA-Public Use
  Company Number: None

PATIENT
  Age: 80 Year
  Sex: Female
  Weight: 104.33 kg

DRUGS (30)
  1. REPATHA [Suspect]
     Active Substance: EVOLOCUMAB
     Indication: Hypercholesterolaemia
     Dosage: FREQUENCY : EVERY OTHER WEEK;?
     Route: 058
     Dates: start: 20211007, end: 20211024
  2. ALBUTEROL [Concomitant]
     Active Substance: ALBUTEROL
  3. ASPIRIN [Concomitant]
     Active Substance: ASPIRIN
  4. Boric Acid Topical Powd [Concomitant]
  5. BUDESONIDE\FORMOTEROL [Concomitant]
     Active Substance: BUDESONIDE\FORMOTEROL
  6. BUPROPION [Concomitant]
     Active Substance: BUPROPION
  7. D3 Super Strength [Concomitant]
  8. DILTIAZEM [Concomitant]
     Active Substance: DILTIAZEM
  9. GABAPENTIN [Concomitant]
     Active Substance: GABAPENTIN
  10. HYDROCHLOROTHIAZIDE [Concomitant]
     Active Substance: HYDROCHLOROTHIAZIDE
  11. IBUPROFEN [Concomitant]
     Active Substance: IBUPROFEN
  12. LEVOTHYROXINE [Concomitant]
     Active Substance: LEVOTHYROXINE
  13. LUTEIN [Concomitant]
     Active Substance: LUTEIN
  14. METHOCARBAMOL [Concomitant]
     Active Substance: METHOCARBAMOL
  15. METOPROLOL SUCCINATE [Concomitant]
     Active Substance: METOPROLOL SUCCINATE
  16. VITAMINS [Concomitant]
     Active Substance: VITAMINS
  17. NITROGLYCERIN [Concomitant]
     Active Substance: NITROGLYCERIN
  18. POTASSIUM CHLORIDE [Concomitant]
     Active Substance: POTASSIUM CHLORIDE
  19. Pyridoxine + B complex [Concomitant]
  20. SPIRONOLACTONE [Concomitant]
     Active Substance: SPIRONOLACTONE
  21. LASIX [Concomitant]
     Active Substance: FUROSEMIDE
  22. Alendronate Na (Fosamax) [Concomitant]
  23. Hair/Skin/Nails [Concomitant]
  24. VITAMIN D3 [Concomitant]
     Active Substance: CHOLECALCIFEROL
  25. ES tUMERIC [Concomitant]
  26. Collagen peptides [Concomitant]
  27. Emergen-C fruit drink powder [Concomitant]
  28. CRANBERRY [Concomitant]
     Active Substance: CRANBERRY
  29. Multi vitamin with zinc [Concomitant]
  30. OMEPRAZOLE [Concomitant]
     Active Substance: OMEPRAZOLE

REACTIONS (5)
  - Dyspnoea [None]
  - Throat tightness [None]
  - Chest discomfort [None]
  - Asthenia [None]
  - Documented hypersensitivity to administered product [None]

NARRATIVE: CASE EVENT DATE: 20211013
